FAERS Safety Report 4926831-7 (Version None)
Quarter: 2006Q1

REPORT INFORMATION
  Report Type: 
  Country: None (occurrence: None)
  Receive Date: 20060228
  Receipt Date: 20050628
  Transmission Date: 20060701
  Serious: No
  Sender: FDA-Public Use
  Company Number: US-GLAXOSMITHKLINE-A0564479A

PATIENT
  Sex: Male

DRUGS (5)
  1. LAMICTAL [Suspect]
     Indication: BIPOLAR DISORDER
     Dosage: 200MG PER DAY
     Route: 048
     Dates: end: 20050628
  2. METOPROLOL [Concomitant]
  3. ADVICOR [Concomitant]
  4. ALTACE [Concomitant]
  5. FUROSEMIDE [Concomitant]

REACTIONS (1)
  - RASH ERYTHEMATOUS [None]
